FAERS Safety Report 17859664 (Version 1)
Quarter: 2020Q2

REPORT INFORMATION
  Report Type: Spontaneous
  Country: None (occurrence: CZ)
  Receive Date: 20200604
  Receipt Date: 20200604
  Transmission Date: 20200714
  Serious: Yes (Death, Life-Threatening, Hospitalization, Other)
  Sender: FDA-Public Use
  Company Number: CZ-MICRO LABS LIMITED-ML2020-01734

PATIENT
  Age: 2 Year
  Sex: Male

DRUGS (2)
  1. PROPAFENONE. [Suspect]
     Active Substance: PROPAFENONE
     Dosage: ONE TABLET OF PROPAFENONE
  2. VERAPAMIL HYDROCHLORIDE. [Suspect]
     Active Substance: VERAPAMIL HYDROCHLORIDE
     Dosage: ONE TABLET OF VERAPAMIL

REACTIONS (6)
  - Coma [Not Recovered/Not Resolved]
  - Dyspnoea [Unknown]
  - Multiple organ dysfunction syndrome [Fatal]
  - Muscle spasms [Unknown]
  - Accidental exposure to product [Fatal]
  - Toxicity to various agents [Fatal]
